FAERS Safety Report 8996057 (Version 1)
Quarter: 2013Q1

REPORT INFORMATION
  Report Type: Spontaneous
  Country: US (occurrence: US)
  Receive Date: 20130103
  Receipt Date: 20130103
  Transmission Date: 20140127
  Serious: No
  Sender: FDA-Public Use
  Company Number: US-ABBOTT-12P-163-1002924-00

PATIENT
  Sex: Female

DRUGS (2)
  1. SYNTHROID [Suspect]
     Indication: HYPOTHYROIDISM
     Dates: start: 2011, end: 2011
  2. SYNTHROID [Suspect]
     Dates: start: 2012

REACTIONS (2)
  - Tremor [Unknown]
  - Insomnia [Not Recovered/Not Resolved]
